FAERS Safety Report 24859706 (Version 7)
Quarter: 2025Q2

REPORT INFORMATION
  Report Type: Report from Study
  Country: US (occurrence: US)
  Receive Date: 20250119
  Receipt Date: 20250623
  Transmission Date: 20250717
  Serious: Yes (Other)
  Sender: NOVARTIS
  Company Number: US-002147023-NVSC2024US214254

PATIENT
  Age: 31 Year
  Sex: Female

DRUGS (2)
  1. KESIMPTA [Suspect]
     Active Substance: OFATUMUMAB
     Indication: Relapsing multiple sclerosis
     Dosage: 20 MG, QMO
     Route: 058
     Dates: start: 20241028
  2. BENADRYL [Concomitant]
     Active Substance: DIPHENHYDRAMINE HYDROCHLORIDE
     Indication: Product used for unknown indication
     Route: 065

REACTIONS (18)
  - Hemiparesis [Recovered/Resolved with Sequelae]
  - Feeling cold [Unknown]
  - Chills [Unknown]
  - Hyperhidrosis [Unknown]
  - Blood pressure increased [Unknown]
  - Fatigue [Unknown]
  - Memory impairment [Unknown]
  - Feeling of body temperature change [Unknown]
  - Thirst [Unknown]
  - Hot flush [Unknown]
  - Fear of injection [Unknown]
  - Multiple allergies [Unknown]
  - Somnolence [Unknown]
  - Peripheral coldness [Unknown]
  - Ill-defined disorder [Unknown]
  - Energy increased [Unknown]
  - Headache [Unknown]
  - Injection site bruising [Unknown]

NARRATIVE: CASE EVENT DATE: 20250115
